FAERS Safety Report 16315758 (Version 3)
Quarter: 2019Q2

REPORT INFORMATION
  Report Type: Spontaneous
  Country: DE (occurrence: DE)
  Receive Date: 20190515
  Receipt Date: 20190515
  Transmission Date: 20190711
  Serious: Yes (Death, Life-Threatening)
  Sender: FDA-Public Use
  Company Number: PHHY2019DE110494

PATIENT
  Age: 45 Year
  Sex: Male
  Weight: 88 kg

DRUGS (79)
  1. ZIENAM [Suspect]
     Active Substance: CILASTATIN SODIUM\IMIPENEM
     Dosage: 500 MG, UNK
     Route: 042
  2. ZIENAM [Suspect]
     Active Substance: CILASTATIN SODIUM\IMIPENEM
     Dosage: 500 MG, UNK
     Route: 042
  3. NOVALGIN (METAMIZOLE SODIUM) [Suspect]
     Active Substance: METAMIZOLE SODIUM
     Indication: PAIN
     Dosage: 1 G, UNK
     Route: 042
  4. NOVALGIN (METAMIZOLE SODIUM) [Suspect]
     Active Substance: METAMIZOLE SODIUM
     Dosage: 1 G, UNK
     Route: 042
  5. MAGNESIUM [Concomitant]
     Active Substance: MAGNESIUM
     Dosage: INTERMITTENT THERAPY.
     Route: 042
  6. PENTAGLOBIN [Concomitant]
     Active Substance: HUMAN IMMUNOGLOBULIN G
     Indication: BONE MARROW TRANSPLANT
     Dosage: 20 G, UNK GIVEN ON 15,19,,26 NOV ONLY.
     Route: 042
  7. ZIENAM [Suspect]
     Active Substance: CILASTATIN SODIUM\IMIPENEM
     Indication: INFECTION
     Dosage: 500 MG, UNK
     Route: 042
  8. SANDIMMUN [Concomitant]
     Active Substance: CYCLOSPORINE
     Indication: BONE MARROW TRANSPLANT
     Route: 042
  9. TAVEGIL [Concomitant]
     Active Substance: CLEMASTINE FUMARATE
     Indication: GRAFT VERSUS HOST DISEASE
     Route: 042
  10. KONAKION [Suspect]
     Active Substance: PHYTONADIONE
     Indication: COAGULOPATHY
     Dosage: 10 MG, UNK
     Route: 042
  11. DOPAMIN (DOPAMINE HYDROCHLORIDE) [Suspect]
     Active Substance: DOPAMINE HYDROCHLORIDE
     Indication: HYPOTENSION
     Dosage: 1.2 ML, UNK
     Route: 042
  12. SODIUM CHLORIDE. [Concomitant]
     Active Substance: SODIUM CHLORIDE
     Indication: HYPONATRAEMIA
     Route: 042
  13. MAGNESIUM [Concomitant]
     Active Substance: MAGNESIUM
     Indication: BLOOD MAGNESIUM DECREASED
     Dosage: INTERMITTENT THERAPY.
     Route: 042
  14. SOLUVIT [Concomitant]
     Active Substance: VITAMINS
     Indication: PARENTERAL NUTRITION
     Dosage: UNK
     Route: 042
  15. INTRALIPID [Concomitant]
     Active Substance: EGG PHOSPHOLIPIDS\GLYCERIN\SOYBEAN OIL
     Indication: PARENTERAL NUTRITION
     Route: 042
  16. CALCIUM [Concomitant]
     Active Substance: CALCIUM
     Indication: BLOOD CALCIUM DECREASED
     Route: 042
  17. SODIUM BICARBONATE. [Concomitant]
     Active Substance: SODIUM BICARBONATE
     Indication: ACIDOSIS
     Dosage: INTERMITTENT THERAPY.
     Route: 042
  18. TOBRAMYCIN. [Suspect]
     Active Substance: TOBRAMYCIN
     Indication: INFECTION
     Dosage: 520 MG, UNK
     Route: 042
  19. REMERGIL [Suspect]
     Active Substance: MIRTAZAPINE
     Indication: DEPRESSION
     Dosage: 15 MG, UNK
     Route: 048
  20. REMERGIL [Suspect]
     Active Substance: MIRTAZAPINE
     Dosage: 15 MG, UNK
     Route: 048
  21. BACTRIM [Suspect]
     Active Substance: SULFAMETHOXAZOLE\TRIMETHOPRIM
     Indication: INFECTION
     Dosage: 160 MG, UNK
     Route: 042
  22. BACTRIM [Suspect]
     Active Substance: SULFAMETHOXAZOLE\TRIMETHOPRIM
     Dosage: 160 MG, UNK
     Route: 042
  23. CYMEVAN [Suspect]
     Active Substance: GANCICLOVIR
     Indication: PRODUCT USED FOR UNKNOWN INDICATION
     Dosage: 225 MG, UNK
     Route: 042
  24. AMBISOME [Suspect]
     Active Substance: AMPHOTERICIN B
     Indication: FUNGAL INFECTION
     Route: 042
  25. RESONIUM A [Suspect]
     Active Substance: SODIUM POLYSTYRENE SULFONATE
     Indication: HYPERKALAEMIA
     Dosage: 30 G, QD
     Route: 048
     Dates: start: 19981129, end: 19981129
  26. CANDIO-HERMAL [Concomitant]
     Active Substance: NYSTATIN
     Indication: CANDIDA INFECTION
     Route: 061
  27. AMINOMIX [Concomitant]
     Dosage: INTERMITTENT THERAPY.
     Route: 042
  28. MTX [Concomitant]
     Active Substance: METHOTREXATE SODIUM
     Indication: BONE MARROW TRANSPLANT
     Dosage: 10 MG, UNK
     Route: 042
  29. PROSTAVASIN [Concomitant]
     Active Substance: ALPROSTADIL ALFADEX
     Indication: CARDIOVASCULAR DISORDER
     Dosage: 500 G, UNK
     Route: 042
  30. ZIENAM [Suspect]
     Active Substance: CILASTATIN SODIUM\IMIPENEM
     Dosage: 500 MG, UNK
     Route: 042
  31. NOVALGIN (METAMIZOLE SODIUM) [Suspect]
     Active Substance: METAMIZOLE SODIUM
     Dosage: IRREGULAR/UNKNOWN DOSING.
     Route: 042
  32. TAVOR (SIMVASTATIN) [Suspect]
     Active Substance: SIMVASTATIN
     Indication: SEDATION
     Dosage: 1 MG, UNK
     Route: 042
  33. AMPHOTERICIN B. [Concomitant]
     Active Substance: AMPHOTERICIN B
     Indication: FUNGAL INFECTION
     Dosage: LEVEL 1/DAY.
     Route: 042
  34. AQUAPHOR [Concomitant]
     Active Substance: PETROLATUM
     Indication: OEDEMA
     Dosage: 20 MG, UNK
     Route: 048
  35. INZOLEN [Concomitant]
     Active Substance: MAGNESIUM ASPARTATE\POTASSIUM ASPARTATE
     Indication: ELECTROLYTE SUBSTITUTION THERAPY
     Dosage: UNK
     Route: 042
  36. DIPEPTAMIN [Concomitant]
     Indication: PARENTERAL NUTRITION
     Dosage: INTERMITTENT THERAPY.
     Route: 042
  37. ZOVIRAX [Concomitant]
     Active Substance: ACYCLOVIR
     Indication: PROPHYLAXIS
     Dosage: 500 MG, UNK
     Route: 042
  38. FUROSEMIDE. [Suspect]
     Active Substance: FUROSEMIDE
     Indication: OEDEMA
     Dosage: 10 MG, UNK
     Route: 042
  39. FUROSEMIDE. [Suspect]
     Active Substance: FUROSEMIDE
     Dosage: 10 MG, UNK
     Route: 042
  40. FUROSEMIDE. [Suspect]
     Active Substance: FUROSEMIDE
     Dosage: 10 MG, UNK
     Route: 042
  41. BACTRIM [Suspect]
     Active Substance: SULFAMETHOXAZOLE\TRIMETHOPRIM
     Dosage: 160 MG, UNK
     Route: 042
  42. BACTRIM [Suspect]
     Active Substance: SULFAMETHOXAZOLE\TRIMETHOPRIM
     Dosage: 160 MG, UNK
     Route: 042
  43. URBASON SOLUBILE FORTE [Suspect]
     Active Substance: METHYLPREDNISOLONE SODIUM SUCCINATE
     Indication: GRAFT VERSUS HOST DISEASE
     Route: 042
  44. VOMEX A [Suspect]
     Active Substance: DIMENHYDRINATE
     Indication: NAUSEA
     Route: 042
  45. NEUPOGEN [Suspect]
     Active Substance: FILGRASTIM
     Indication: BONE MARROW TRANSPLANT
     Dosage: 480 UG, UNK
     Route: 042
  46. DOLANTIN [Concomitant]
     Active Substance: MEPERIDINE
     Indication: SEDATION
     Dosage: 50 MG, UNK
     Route: 042
  47. ACC [Concomitant]
     Active Substance: ACETYLCYSTEINE
     Indication: UNEVALUABLE EVENT
     Route: 042
  48. SOLU DECORTIN H [Concomitant]
     Active Substance: PREDNISOLONE SODIUM SUCCINATE
     Indication: GRAFT VERSUS HOST DISEASE
     Dosage: 25 MG, UNK
     Route: 042
  49. AQUAPHOR [Concomitant]
     Active Substance: PETROLATUM
     Dosage: 20 MG, UNK
     Route: 048
  50. AQUAPHOR [Concomitant]
     Active Substance: PETROLATUM
     Dosage: 20 MG, UNK
     Route: 048
  51. GRANOCYTE [Concomitant]
     Active Substance: LENOGRASTIM
     Indication: BONE MARROW TRANSPLANT
     Route: 042
  52. VANCOMYCIN [Concomitant]
     Active Substance: VANCOMYCIN
     Indication: INFECTION
     Dosage: 0.5 G, UNK
     Route: 042
  53. FUROSEMIDE. [Suspect]
     Active Substance: FUROSEMIDE
     Dosage: 10 MG, UNK
     Route: 042
  54. FORTUM [Suspect]
     Active Substance: CEFTAZIDIME
     Indication: INFECTION
     Dosage: 2 G, UNK
     Route: 042
  55. BACTRIM [Suspect]
     Active Substance: SULFAMETHOXAZOLE\TRIMETHOPRIM
     Dosage: 160 MG, UNK
     Route: 042
  56. DIFLUCAN [Suspect]
     Active Substance: FLUCONAZOLE
     Indication: ANTIFUNGAL PROPHYLAXIS
     Dosage: 200 MG, UNK
     Route: 042
  57. AMINOMIX [Concomitant]
     Indication: PARENTERAL NUTRITION
     Dosage: INTERMITTENT THERAPY.
     Route: 042
  58. AQUAPHOR [Concomitant]
     Active Substance: PETROLATUM
     Route: 048
  59. MORPHIN [Concomitant]
     Active Substance: MORPHINE
     Indication: SEDATION
     Dosage: 0.5 MG, UNK
     Route: 042
  60. AMPHO MORONAL [Concomitant]
     Active Substance: AMPHOTERICIN B
     Indication: ANTIFUNGAL PROPHYLAXIS
     Dosage: 1 DF, UNK
     Route: 048
  61. PEPDUL [Concomitant]
     Active Substance: FAMOTIDINE
     Indication: PROPHYLAXIS
     Dosage: 40 MG, UNK
     Route: 042
  62. CLONT [Concomitant]
     Indication: INFECTION
     Dosage: 500 MG, UNK
     Route: 042
  63. TARIVID [Concomitant]
     Active Substance: OFLOXACIN
     Indication: INFECTION
     Dosage: 200 MG, UNK
     Route: 042
  64. TOBRAMYCIN. [Suspect]
     Active Substance: TOBRAMYCIN
     Dosage: 520 MG, UNK
     Route: 042
  65. PREDNISOLONE. [Suspect]
     Active Substance: PREDNISOLONE
     Indication: CONJUNCTIVITIS
     Dosage: UNK
     Route: 061
  66. KONAKION [Suspect]
     Active Substance: PHYTONADIONE
     Dosage: IRREGULAR/UNKNOWN DOSING.
     Route: 042
  67. CIPROBAY (CIPROFLOXACIN HYDROCHLORIDE/HYDROCORTISONE) [Suspect]
     Active Substance: CIPROFLOXACIN HYDROCHLORIDE\HYDROCORTISONE
     Indication: CYSTITIS
     Dosage: 400 MG, UNK
     Route: 042
  68. FORTUM [Suspect]
     Active Substance: CEFTAZIDIME
     Dosage: 2 G, UNK
     Route: 042
  69. BACTRIM [Suspect]
     Active Substance: SULFAMETHOXAZOLE\TRIMETHOPRIM
     Dosage: 160 MG, UNK
     Route: 042
  70. NOVALGIN (METAMIZOLE SODIUM) [Suspect]
     Active Substance: METAMIZOLE SODIUM
     Dosage: 1 G, UNK
     Route: 042
  71. LASIX [Suspect]
     Active Substance: FUROSEMIDE
     Indication: OEDEMA
     Dosage: 40 MG, UNK
     Route: 042
  72. GENTAMYCIN [Suspect]
     Active Substance: GENTAMICIN
     Indication: CONJUNCTIVITIS
     Dosage: 2 GTT, UNK 1 DROP PER EYE TWICE DAILY.
     Route: 047
  73. KALIUMCHLORID [Concomitant]
     Active Substance: POTASSIUM CHLORIDE
     Indication: HYPOKALAEMIA
     Dosage: INTERMITTENT THERAPY.
     Route: 042
  74. GLUCOSE [Concomitant]
     Active Substance: DEXTROSE
     Indication: PARENTERAL NUTRITION
     Dosage: 10, 40 OR 70% SOLUTIONS.
     Route: 042
  75. ACTRAPID [Concomitant]
     Active Substance: INSULIN HUMAN
     Indication: DIABETES MELLITUS
     Dosage: 2 IU, UNK
     Route: 042
  76. AMPHO-MORONAL [Concomitant]
     Active Substance: AMPHOTERICIN B
     Indication: ANTIFUNGAL PROPHYLAXIS
     Dosage: 4 ML, UNK
     Route: 048
  77. VITAMINS NOS [Concomitant]
     Active Substance: VITAMINS
     Indication: NUTRITIONAL SUPPLEMENTATION
     Route: 042
  78. AMPHO-MORONAL [Concomitant]
     Active Substance: AMPHOTERICIN B
     Indication: ANTIFUNGAL PROPHYLAXIS
     Dosage: 4 ML, UNK
     Route: 055
  79. AMINOPLASMAL [Concomitant]
     Active Substance: AMINO ACIDS
     Indication: PARENTERAL NUTRITION
     Dosage: INTERMITTENT THERAPY.
     Route: 042

REACTIONS (2)
  - Toxic epidermal necrolysis [Fatal]
  - Graft versus host disease [Fatal]

NARRATIVE: CASE EVENT DATE: 19981121
